FAERS Safety Report 9559245 (Version 2)
Quarter: 2013Q3

REPORT INFORMATION
  Report Type: Report from Study
  Country: CA (occurrence: CA)
  Receive Date: 20130927
  Receipt Date: 20130927
  Transmission Date: 20140515
  Serious: Yes (Death)
  Sender: FDA-Public Use
  Company Number: PHHY2013CA083329

PATIENT
  Age: 50 Year
  Sex: Male

DRUGS (2)
  1. SANDOSTATIN [Suspect]
     Indication: COLON CANCER
     Dosage: 200 UG, TID
     Route: 058
     Dates: start: 20130727
  2. SANDOSTATIN LAR [Suspect]
     Indication: COLON CANCER
     Dosage: 20 MG, QMO
     Route: 030
     Dates: start: 20130731, end: 20130829

REACTIONS (2)
  - Death [Fatal]
  - Constipation [Unknown]
